FAERS Safety Report 12423259 (Version 1)
Quarter: 2016Q2

REPORT INFORMATION
  Report Type: Spontaneous
  Country: US (occurrence: None)
  Receive Date: 20160531
  Receipt Date: 20160531
  Transmission Date: 20160815
  Serious: Yes (Other)
  Sender: FDA-Public Use
  Company Number: None

PATIENT
  Age: 58 Year
  Sex: Female
  Weight: 75.3 kg

DRUGS (9)
  1. I-METHYLFOLATE-B-12-ACETYLCYST [Concomitant]
  2. TEMAZEPAM. [Concomitant]
     Active Substance: TEMAZEPAM
  3. RESVERATOL [Concomitant]
  4. ESTRADIOL. [Concomitant]
     Active Substance: ESTRADIOL
  5. ASPIRIN. [Concomitant]
     Active Substance: ASPIRIN
  6. DICLOFENAC POTASSIUM. [Concomitant]
     Active Substance: DICLOFENAC POTASSIUM
  7. FISH OIL [Concomitant]
     Active Substance: FISH OIL
  8. PROBIOTIC [Concomitant]
     Active Substance: PROBIOTICS NOS
  9. VIIBRYD [Suspect]
     Active Substance: VILAZODONE HYDROCHLORIDE
     Indication: ANXIETY
     Dosage: 1 TABLET(S) ONCE A DAY TAKEN BY MOUTH
     Route: 048
     Dates: start: 20160421, end: 20160523

REACTIONS (16)
  - Headache [None]
  - Mood altered [None]
  - Ocular hyperaemia [None]
  - Abdominal pain upper [None]
  - Somnolence [None]
  - Weight increased [None]
  - Dry eye [None]
  - Depressed mood [None]
  - Nausea [None]
  - Dyspnoea [None]
  - Pruritus generalised [None]
  - Abnormal dreams [None]
  - Eye swelling [None]
  - Diarrhoea [None]
  - Hypersomnia [None]
  - Musculoskeletal stiffness [None]

NARRATIVE: CASE EVENT DATE: 20160522
